APPROVED DRUG PRODUCT: CHLORPROPAMIDE
Active Ingredient: CHLORPROPAMIDE
Strength: 100MG
Dosage Form/Route: TABLET;ORAL
Application: A088852 | Product #001
Applicant: WATSON LABORATORIES INC AN INDIRECT WHOLLY OWNED SUB OF TEVA PHARMACEUTICALS USA INC
Approved: Sep 26, 1984 | RLD: No | RS: No | Type: DISCN